FAERS Safety Report 8797096 (Version 5)
Quarter: 2013Q1

REPORT INFORMATION
  Report Type: Spontaneous
  Country: US (occurrence: US)
  Receive Date: 20120920
  Receipt Date: 20130206
  Transmission Date: 20140127
  Serious: Yes (Hospitalization, Disabling, Other)
  Sender: FDA-Public Use
  Company Number: US-009507513-1201USA00227

PATIENT
  Sex: Female
  Weight: 112 kg

DRUGS (14)
  1. FOSAMAX [Suspect]
     Indication: OSTEOPOROSIS
     Dosage: 70 MG, QW
     Route: 048
     Dates: end: 200807
  2. FOSAMAX [Suspect]
     Indication: OSTEOPENIA
  3. FOSAMAX PLUS D [Suspect]
     Indication: OSTEOPOROSIS
     Route: 048
     Dates: start: 200005, end: 20080318
  4. FOSAMAX PLUS D [Suspect]
     Indication: OSTEOPENIA
  5. ZOMETA [Suspect]
     Indication: OSTEOPOROSIS
     Dosage: 4 MG, UNK
     Route: 041
     Dates: start: 2009, end: 2010
  6. ZOMETA [Suspect]
     Indication: OSTEOPENIA
  7. VITAMIN D (UNSPECIFIED) [Concomitant]
     Indication: OSTEOPOROSIS
  8. VITAMIN D (UNSPECIFIED) [Concomitant]
     Indication: OSTEOPENIA
  9. CALCIUM (UNSPECIFIED) [Concomitant]
     Indication: OSTEOPOROSIS
  10. CALCIUM (UNSPECIFIED) [Concomitant]
     Indication: OSTEOPENIA
  11. HUMALOG [Concomitant]
     Indication: DIABETES MELLITUS
  12. LANTUS [Concomitant]
     Indication: DIABETES MELLITUS
  13. PREMPHASE [Concomitant]
     Indication: OSTEOPENIA
     Dosage: UNK
     Dates: start: 1998
  14. PREMPHASE [Concomitant]
     Indication: POSTMENOPAUSE

REACTIONS (84)
  - Femur fracture [Recovering/Resolving]
  - Femur fracture [Not Recovered/Not Resolved]
  - Femur fracture [Not Recovered/Not Resolved]
  - Surgery [Unknown]
  - Surgery [Unknown]
  - Device malfunction [Not Recovered/Not Resolved]
  - Fall [Not Recovered/Not Resolved]
  - Incision site infection [Not Recovered/Not Resolved]
  - Femur fracture [Not Recovered/Not Resolved]
  - Impaired healing [Not Recovered/Not Resolved]
  - Device malfunction [Not Recovered/Not Resolved]
  - Intramedullary rod insertion [Unknown]
  - Device malfunction [Not Recovered/Not Resolved]
  - Femur fracture [Not Recovered/Not Resolved]
  - Femur fracture [Not Recovered/Not Resolved]
  - Hip arthroplasty [Unknown]
  - Impaired healing [Not Recovered/Not Resolved]
  - Fracture nonunion [Unknown]
  - Haematocrit decreased [Unknown]
  - Haematocrit decreased [Unknown]
  - Fall [Unknown]
  - Open reduction of fracture [Unknown]
  - Fracture nonunion [Not Recovered/Not Resolved]
  - Open reduction of fracture [Not Recovered/Not Resolved]
  - Fracture nonunion [Not Recovered/Not Resolved]
  - Hypothyroidism [Unknown]
  - Fall [Unknown]
  - Pain [Unknown]
  - Depression [Unknown]
  - Adverse event [Unknown]
  - Ear infection [Unknown]
  - Cataract [Unknown]
  - Localised infection [Unknown]
  - Decubitus ulcer [Unknown]
  - Anaemia [Unknown]
  - Vitamin D deficiency [Unknown]
  - Monoclonal gammopathy [Unknown]
  - Rheumatoid arthritis [Unknown]
  - N-terminal prohormone brain natriuretic peptide decreased [Unknown]
  - Granuloma annulare [Unknown]
  - Bursitis [Unknown]
  - Parathyroid disorder [Unknown]
  - Blood calcium increased [Unknown]
  - Fungal infection [Unknown]
  - Urinary tract infection [Unknown]
  - Sleep disorder [Unknown]
  - Throat lesion [Unknown]
  - Granuloma [Unknown]
  - Breast calcifications [Unknown]
  - Breast pain [Unknown]
  - Blood cholesterol increased [Unknown]
  - Urinary incontinence [Unknown]
  - Fall [Unknown]
  - Arthritis [Unknown]
  - Dry skin [Unknown]
  - Foreign body [Unknown]
  - Hyperkeratosis [Unknown]
  - Bunion [Unknown]
  - Dermatitis contact [Unknown]
  - Tooth disorder [Recovered/Resolved]
  - Gingival bleeding [Recovered/Resolved]
  - Tooth disorder [Unknown]
  - Vitamin D decreased [Unknown]
  - Haemorrhage [Unknown]
  - Soft tissue disorder [Unknown]
  - Endodontic procedure [Unknown]
  - Hypertension [Unknown]
  - Poliomyelitis [Unknown]
  - Eye operation [Unknown]
  - Joint injury [Unknown]
  - Road traffic accident [Unknown]
  - Rib fracture [Unknown]
  - Fall [Unknown]
  - Fall [Unknown]
  - Biopsy bone [Unknown]
  - Fatigue [Unknown]
  - Biopsy bone [Unknown]
  - Back pain [Unknown]
  - Malaise [Unknown]
  - Blood calcium decreased [Unknown]
  - Pruritus [Unknown]
  - Headache [Recovering/Resolving]
  - Musculoskeletal discomfort [Unknown]
  - Gastrooesophageal reflux disease [Unknown]
